FAERS Safety Report 9328828 (Version 2)
Quarter: 2014Q2

REPORT INFORMATION
  Report Type: Spontaneous
  Country: US (occurrence: US)
  Receive Date: 20130604
  Receipt Date: 20140522
  Transmission Date: 20141212
  Serious: Yes (Other)
  Sender: FDA-Public Use
  Company Number: US-SANOFI-AVENTIS-2013SA016516

PATIENT
  Age: 48 Year
  Sex: Female

DRUGS (7)
  1. LANTUS SOLOSTAR [Suspect]
     Indication: TYPE 1 DIABETES MELLITUS
     Dosage: FREQUENCY - MORNING DOSE:26 UNIT(S)
     Route: 051
  2. LANTUS SOLOSTAR [Suspect]
     Indication: TYPE 1 DIABETES MELLITUS
     Dosage: FREQUENCY - MORNING DOSE:26 UNIT(S)
     Route: 051
  3. LANTUS SOLOSTAR [Suspect]
     Indication: TYPE 1 DIABETES MELLITUS
     Dosage: FREQUENCY - MORNING DOSE:26 UNIT(S)
     Route: 051
  4. SOLOSTAR [Suspect]
     Indication: TYPE 1 DIABETES MELLITUS
  5. SOLOSTAR [Suspect]
     Indication: TYPE 1 DIABETES MELLITUS
  6. SOLOSTAR [Suspect]
     Indication: TYPE 1 DIABETES MELLITUS
  7. HUMALOG [Concomitant]

REACTIONS (6)
  - Hypoglycaemia [Recovered/Resolved]
  - Hyperglycaemia [Recovered/Resolved]
  - Weight decreased [Recovered/Resolved]
  - Blood glucose increased [Recovered/Resolved]
  - Drug ineffective [Recovered/Resolved]
  - Blood glucose decreased [Recovered/Resolved]
